FAERS Safety Report 7648320-1 (Version None)
Quarter: 2011Q3

REPORT INFORMATION
  Report Type: 
  Country: None (occurrence: None)
  Receive Date: 20110801
  Receipt Date: 20110722
  Transmission Date: 20111222
  Serious: Yes (Hospitalization, Other)
  Sender: FDA-Public Use
  Company Number: US-ASTRAZENECA-2011SE44289

PATIENT
  Age: 70 Year
  Sex: Female

DRUGS (22)
  1. FERROUS SULFATE TAB [Concomitant]
  2. LOVAZA [Concomitant]
     Route: 048
  3. ASPIRIN [Concomitant]
  4. CYCLOBENZAPRINE HCL [Concomitant]
     Indication: MUSCLE SPASMS
     Route: 048
  5. HYDROCHLOROTHIAZIDE [Concomitant]
     Route: 048
  6. WARFARIN SODIUM [Concomitant]
     Route: 048
  7. OMEPRAZOLE [Suspect]
     Route: 048
  8. SEROQUEL [Suspect]
     Route: 048
  9. MULTI-VITAMIN [Concomitant]
     Dosage: DAILY
  10. CRESTOR [Suspect]
     Indication: BLOOD CHOLESTEROL
     Route: 048
  11. GLIMEPIRIDE [Concomitant]
     Indication: DIABETES MELLITUS
     Route: 048
  12. METOPROLOL TARTRATE [Concomitant]
     Route: 048
  13. EFFEXOR XR [Concomitant]
     Route: 048
  14. TRAMADOL HCL [Concomitant]
     Indication: PAIN
     Route: 048
  15. ZYRTEC [Concomitant]
     Indication: ALLERGY PROPHYLAXIS
     Route: 048
  16. LORAZEPAM [Concomitant]
     Route: 048
  17. LANCET [Concomitant]
     Dosage: TWICE DAILY
  18. LORAZEPAM [Concomitant]
     Route: 048
  19. COUMADIN [Concomitant]
     Dosage: AS NEEDED
     Route: 048
  20. PAROXETINE HCL [Concomitant]
  21. ZEMPLAR [Concomitant]
     Route: 048
  22. HYDRALAZINE HCL [Concomitant]
     Route: 048

REACTIONS (16)
  - DIABETES MELLITUS [None]
  - TYPE V HYPERLIPIDAEMIA [None]
  - HIATUS HERNIA [None]
  - GASTROOESOPHAGEAL REFLUX DISEASE [None]
  - HYPOAESTHESIA [None]
  - HERNIA HIATUS REPAIR [None]
  - ATRIAL FIBRILLATION [None]
  - OBESITY [None]
  - CORONARY ARTERY DISEASE [None]
  - HYPERPARATHYROIDISM [None]
  - RENAL FAILURE CHRONIC [None]
  - MUSCLE SPASMS [None]
  - LEFT VENTRICULAR HYPERTROPHY [None]
  - IRON DEFICIENCY ANAEMIA [None]
  - ESSENTIAL HYPERTENSION [None]
  - OSTEOARTHRITIS [None]
